FAERS Safety Report 5595965-9 (Version None)
Quarter: 2008Q1

REPORT INFORMATION
  Report Type: 
  Country: None (occurrence: None)
  Receive Date: 20080118
  Receipt Date: 20080111
  Transmission Date: 20080703
  Serious: Yes (Death, Hospitalization, Other)
  Sender: FDA-Public Use
  Company Number: US-ELI_LILLY_AND_COMPANY-US200801002538

PATIENT
  Sex: Male

DRUGS (3)
  1. GEMZAR [Suspect]
     Indication: PANCREATIC CARCINOMA
     Dosage: COMBINATION;TWICE WEEKLY
     Route: 042
  2. GEMZAR [Suspect]
     Dosage: MAINTENANCE, TWO CYCLES
     Route: 042
  3. ERLOTINIB [Concomitant]
     Indication: PANCREATIC CARCINOMA
     Dosage: DAILY (1/D) WITH RADIATION
     Route: 048

REACTIONS (5)
  - DISEASE PROGRESSION [None]
  - DRUG TOXICITY [None]
  - GASTRODUODENAL ULCER [None]
  - GASTROINTESTINAL HAEMORRHAGE [None]
  - NEUTROPENIA [None]
